FAERS Safety Report 6540513-X (Version None)
Quarter: 2010Q1

REPORT INFORMATION
  Report Type: 
  Country: None (occurrence: None)
  Receive Date: 20100118
  Receipt Date: 20100106
  Transmission Date: 20100710
  Serious: Yes (Hospitalization, Other)
  Sender: FDA-Public Use
  Company Number: US-BIOGENIDEC-2009BI018301

PATIENT
  Age: 58 Year
  Sex: Female

DRUGS (3)
  1. AVONEX [Suspect]
     Indication: MULTIPLE SCLEROSIS
     Route: 030
     Dates: start: 20060120
  2. AVONEX [Suspect]
     Route: 030
     Dates: start: 20060120
  3. AVONEX [Suspect]
     Route: 030

REACTIONS (6)
  - ADVERSE EVENT [None]
  - DEHYDRATION [None]
  - FATIGUE [None]
  - MALNUTRITION [None]
  - OESOPHAGITIS [None]
  - TONGUE CARCINOMA STAGE IV [None]
